FAERS Safety Report 4447210-5 (Version None)
Quarter: 2004Q3

REPORT INFORMATION
  Report Type: 
  Country: None (occurrence: None)
  Receive Date: 20040908
  Receipt Date: 20040908
  Transmission Date: 20050211
  Serious: Yes (Hospitalization)
  Sender: FDA-Public Use
  Company Number: None

PATIENT
  Age: 71 Year
  Sex: Female
  Weight: 63.9572 kg

DRUGS (7)
  1. IMATINIB MESYLATE [Suspect]
     Indication: INTERSTITIAL LUNG DISEASE
     Dosage: 400 MG ONCE DAILY ORAL
     Route: 048
     Dates: start: 20040723, end: 20040907
  2. ASPIRIN [Concomitant]
  3. ATENOLOL [Concomitant]
  4. ISOSORBIDE [Concomitant]
  5. HYDROCHLOROTHIAZIDE [Concomitant]
  6. LIPITOR [Concomitant]
  7. ACTOS [Concomitant]

REACTIONS (1)
  - ACUTE CORONARY SYNDROME [None]
